FAERS Safety Report 9969931 (Version 1)
Quarter: 2014Q1

REPORT INFORMATION
  Report Type: Spontaneous
  Country: US (occurrence: US)
  Receive Date: 20140306
  Receipt Date: 20140306
  Transmission Date: 20141002
  Serious: No
  Sender: FDA-Public Use
  Company Number: US-SANOFI-AVENTIS-2013SA048030

PATIENT
  Sex: Female

DRUGS (1)
  1. GAVISCON [Suspect]

REACTIONS (2)
  - Abdominal distension [Not Recovered/Not Resolved]
  - Diarrhoea [Not Recovered/Not Resolved]
